FAERS Safety Report 24987218 (Version 3)
Quarter: 2025Q2

REPORT INFORMATION
  Report Type: Spontaneous
  Country: JP (occurrence: JP)
  Receive Date: 20250219
  Receipt Date: 20250529
  Transmission Date: 20250716
  Serious: Yes (Death, Other)
  Sender: MERCK SHARP & DOHME LLC
  Company Number: JP-009507513-2255856

PATIENT
  Age: 61 Year
  Sex: Female

DRUGS (2)
  1. KEYTRUDA [Suspect]
     Active Substance: PEMBROLIZUMAB
     Indication: Endometrial adenocarcinoma
     Route: 041
  2. LENVIMA [Suspect]
     Active Substance: LENVATINIB
     Route: 048

REACTIONS (3)
  - Malignant neoplasm progression [Fatal]
  - Hypothyroidism [Unknown]
  - Arthralgia [Unknown]
